FAERS Safety Report 15261127 (Version 1)
Quarter: 2018Q3

REPORT INFORMATION
  Report Type: Spontaneous
  Country: CA (occurrence: CA)
  Receive Date: 20180809
  Receipt Date: 20180809
  Transmission Date: 20181010
  Serious: Yes (Death)
  Sender: FDA-Public Use
  Company Number: CA-TEVA-2018-CA-936169

PATIENT
  Age: 28 Year
  Sex: Male
  Weight: 70 kg

DRUGS (3)
  1. OXYCODONE [Suspect]
     Active Substance: OXYCODONE
     Route: 065
  2. COCAINE [Concomitant]
     Active Substance: COCAINE
  3. CARFENTANIL [Concomitant]
     Active Substance: CARFENTANIL

REACTIONS (3)
  - Toxicity to various agents [Fatal]
  - Postmortem blood drug level increased [Fatal]
  - Opiates positive [Fatal]
